FAERS Safety Report 7539288-7 (Version None)
Quarter: 2011Q2

REPORT INFORMATION
  Report Type: 
  Country: None (occurrence: None)
  Receive Date: 20110610
  Receipt Date: 20110601
  Transmission Date: 20111010
  Serious: Yes (Other)
  Sender: FDA-Public Use
  Company Number: GB-ELI_LILLY_AND_COMPANY-GB201106000059

PATIENT
  Age: 37 Year
  Sex: Female
  Weight: 95 kg

DRUGS (5)
  1. TOPIRAMATE [Concomitant]
     Dosage: 50 MG, BID
     Route: 048
  2. CITALOPRAM HYDROBROMIDE [Concomitant]
     Dosage: 10 MG, UNK
     Route: 048
  3. GLICLAZIDE [Concomitant]
     Dosage: 80 MG, BID
     Route: 048
  4. BYETTA [Suspect]
     Indication: HYPERGLYCAEMIA
     Dosage: 5 UG, UNK
     Route: 058
     Dates: start: 20110415, end: 20110513
  5. METFORMIN HYDROCHLORIDE [Concomitant]
     Dosage: 1 G, BID
     Route: 048

REACTIONS (1)
  - TREMOR [None]
